FAERS Safety Report 10168110 (Version 2)
Quarter: 2014Q2

REPORT INFORMATION
  Report Type: Report from Study
  Country: US (occurrence: US)
  Receive Date: 20140512
  Receipt Date: 20140512
  Transmission Date: 20141212
  Serious: Yes (Hospitalization)
  Sender: FDA-Public Use
  Company Number: US-ACTELION-A-US2014-94157

PATIENT
  Age: 78 Year
  Sex: Female

DRUGS (3)
  1. TRACLEER [Suspect]
     Indication: PULMONARY ARTERIAL HYPERTENSION
     Dosage: 125 MG, UNK
     Route: 048
     Dates: start: 200907
  2. TRACLEER [Suspect]
     Dosage: 62.5 MG, UNK
     Route: 048
     Dates: start: 20090625, end: 200907
  3. SILDENAFIL [Concomitant]

REACTIONS (6)
  - Gastritis [Recovering/Resolving]
  - Lung infection [Recovering/Resolving]
  - Chronic obstructive pulmonary disease [Recovering/Resolving]
  - Sinusitis [Recovering/Resolving]
  - Dyspnoea [Recovering/Resolving]
  - Anaemia [Recovering/Resolving]
